FAERS Safety Report 25842491 (Version 2)
Quarter: 2025Q4

REPORT INFORMATION
  Report Type: Spontaneous
  Country: US (occurrence: US)
  Receive Date: 20250924
  Receipt Date: 20251001
  Transmission Date: 20260119
  Serious: Yes (Hospitalization, Other)
  Sender: CSL BEHRING
  Company Number: US-BEH-2025218951

PATIENT

DRUGS (2)
  1. PRIVIGEN [Suspect]
     Active Substance: HUMAN IMMUNOGLOBULIN G
     Indication: Hypogammaglobulinaemia
     Dosage: 10 G, SINGLE
     Route: 065
     Dates: start: 20250905, end: 20250905
  2. PRIVIGEN [Suspect]
     Active Substance: HUMAN IMMUNOGLOBULIN G
     Dosage: 20 G, SINGLE
     Route: 065
     Dates: start: 20250906, end: 20250906

REACTIONS (2)
  - Rhesus antibodies positive [Recovering/Resolving]
  - Haemolysis [Recovering/Resolving]
